FAERS Safety Report 21264591 (Version 1)
Quarter: 2022Q3

REPORT INFORMATION
  Report Type: Spontaneous
  Country: RO (occurrence: RO)
  Receive Date: 20220829
  Receipt Date: 20220829
  Transmission Date: 20221027
  Serious: Yes (Other)
  Sender: FDA-Public Use
  Company Number: RO-CHEPLA-2022007247

PATIENT
  Age: 56 Year
  Sex: Male

DRUGS (7)
  1. CLONAZEPAM [Suspect]
     Active Substance: CLONAZEPAM
     Indication: Rapid eye movement sleep behaviour disorder
  2. CLONAZEPAM [Suspect]
     Active Substance: CLONAZEPAM
     Indication: Acute psychosis
  3. CLOZAPINE [Concomitant]
     Active Substance: CLOZAPINE
     Indication: Acute psychosis
     Dosage: DAILY DOSE: 50 MILLIGRAM
  4. CLOZAPINE [Concomitant]
     Active Substance: CLOZAPINE
     Indication: Rapid eye movement sleep behaviour disorder
     Dosage: DAILY DOSE: 50 MILLIGRAM
  5. LEVODOPA [Concomitant]
     Active Substance: LEVODOPA
     Indication: Parkinson^s disease
  6. QUETIAPINE [Concomitant]
     Active Substance: QUETIAPINE
     Indication: Parkinson^s disease
  7. BROMOCRIPTINE [Concomitant]
     Active Substance: BROMOCRIPTINE
     Indication: Parkinson^s disease

REACTIONS (2)
  - Neuroleptic malignant syndrome [Not Recovered/Not Resolved]
  - Drug ineffective [Recovered/Resolved]
